FAERS Safety Report 6364154-2 (Version None)
Quarter: 2009Q3

REPORT INFORMATION
  Report Type: 
  Country: None (occurrence: None)
  Receive Date: 20090919
  Receipt Date: 20090715
  Transmission Date: 20100115
  Serious: No
  Sender: FDA-Public Use
  Company Number: US-ABBOTT-09P-163-0585499-00

PATIENT
  Sex: Female
  Weight: 54.026 kg

DRUGS (2)
  1. HUMIRA [Suspect]
     Indication: RHEUMATOID ARTHRITIS
     Dates: start: 20090528
  2. METHOTREXATE [Concomitant]
     Indication: RHEUMATOID ARTHRITIS
     Dosage: 6 PILLS PER WEEK

REACTIONS (3)
  - INFLUENZA LIKE ILLNESS [None]
  - ORAL CANDIDIASIS [None]
  - ORAL HERPES [None]
